FAERS Safety Report 18609048 (Version 2)
Quarter: 2021Q1

REPORT INFORMATION
  Report Type: Report from Study
  Country: US (occurrence: US)
  Receive Date: 20201214
  Receipt Date: 20210127
  Transmission Date: 20210419
  Serious: No
  Sender: FDA-Public Use
  Company Number: US-IPSEN BIOPHARMACEUTICALS, INC.-2019-07383

PATIENT
  Age: 3 Year
  Sex: Male
  Weight: 11.79 kg

DRUGS (7)
  1. DIAZEPAM. [Concomitant]
     Active Substance: DIAZEPAM
     Indication: CEREBRAL PALSY
     Route: 048
     Dates: start: 20180815, end: 20180820
  2. DYSPORT [Suspect]
     Active Substance: ABOBOTULINUMTOXINA
     Indication: MUSCLE SPASTICITY
  3. DYSPORT [Suspect]
     Active Substance: ABOBOTULINUMTOXINA
     Indication: OFF LABEL USE
  4. KEPPRA [Concomitant]
     Active Substance: LEVETIRACETAM
     Indication: CHRONIC RESPIRATORY DISEASE
     Route: 048
     Dates: start: 20150521
  5. DIASTAT [Concomitant]
     Active Substance: DIAZEPAM
     Indication: SEIZURE
     Route: 030
     Dates: start: 2014
  6. DYSPORT [Suspect]
     Active Substance: ABOBOTULINUMTOXINA
     Indication: MUSCLE SPASTICITY
     Dosage: 500 UNITS (HAMSTRINGS AND GASTROCS 130 UNITS EACH AND R,L MEDIAL AND LATERAL GASTROCS 60 UNITS EACH)
     Route: 065
     Dates: start: 20170724, end: 20170724
  7. ALBUTEROL. [Concomitant]
     Active Substance: ALBUTEROL
     Indication: ASTHMA
     Route: 048
     Dates: start: 20150515

REACTIONS (2)
  - Constipation [Recovered/Resolved]
  - Off label use [Unknown]

NARRATIVE: CASE EVENT DATE: 20170724
